FAERS Safety Report 7771290-2 (Version None)
Quarter: 2011Q3

REPORT INFORMATION
  Report Type: 
  Country: None (occurrence: None)
  Receive Date: 20110922
  Receipt Date: 20110912
  Transmission Date: 20111222
  Serious: Yes (Hospitalization)
  Sender: FDA-Public Use
  Company Number: US-VERTEX PHARMACEUTICALS INC.-AE-2011-000187

PATIENT
  Sex: Female
  Weight: 77.634 kg

DRUGS (16)
  1. ACETAMINOPHEN [Concomitant]
     Indication: HEADACHE
     Route: 048
  2. MULTI-VITAMINS [Concomitant]
  3. HYDROCODONE BITARTRATE AND ACETAMINOPHEN [Concomitant]
     Route: 048
     Dates: start: 20110416
  4. VX-950 [Suspect]
     Indication: HEPATITIS C
     Route: 048
     Dates: start: 20110207, end: 20110418
  5. METAMUCIL-2 [Concomitant]
     Indication: MEDICAL DIET
     Route: 048
  6. ZOLPIDEM [Concomitant]
     Indication: INSOMNIA
     Route: 048
     Dates: start: 20110310
  7. CITALOPRAM HYDROBROMIDE [Concomitant]
     Indication: IRRITABILITY
     Route: 048
     Dates: start: 20110405
  8. ONDANSETRON [Concomitant]
     Indication: NAUSEA
     Route: 048
     Dates: start: 20110416
  9. ALLEGRA [Concomitant]
     Indication: DERMATITIS
     Route: 048
  10. OMEPRAZOLE [Concomitant]
     Indication: DYSPEPSIA
     Route: 048
  11. CITALOPRAM HYDROBROMIDE [Concomitant]
     Indication: DEPRESSION
  12. LOPERAMIDE HCL [Concomitant]
     Route: 048
  13. PENICILLIN VK [Concomitant]
     Route: 048
     Dates: start: 20110417
  14. CLOBEX [Concomitant]
     Indication: DERMATITIS
     Dates: start: 20110418
  15. PEGASYS [Suspect]
     Indication: HEPATITIS C
     Route: 058
     Dates: start: 20110207, end: 20110418
  16. COPEGUS [Suspect]
     Indication: HEPATITIS C
     Dosage: 600MG IN THE MORNING AND 600MG IN THE EVENING
     Route: 048
     Dates: start: 20110207, end: 20110418

REACTIONS (1)
  - DERMATITIS EXFOLIATIVE [None]
